FAERS Safety Report 4487025-5 (Version None)
Quarter: 2004Q3

REPORT INFORMATION
  Report Type: 
  Country: None (occurrence: None)
  Receive Date: 20040921
  Receipt Date: 20040510
  Transmission Date: 20050211
  Serious: Yes (Hospitalization, Other)
  Sender: FDA-Public Use
  Company Number: 163-20785-04040227

PATIENT
  Age: 59 Year
  Sex: Female

DRUGS (3)
  1. THALOMID [Suspect]
     Indication: MULTIPLE MYELOMA
     Dosage: 200 MG QD ORAL
     Route: 048
     Dates: start: 20031201, end: 20040412
  2. DECADRON [Concomitant]
  3. DARVOCET [Concomitant]

REACTIONS (1)
  - DEEP VEIN THROMBOSIS [None]
